FAERS Safety Report 18684153 (Version 2)
Quarter: 2021Q1

REPORT INFORMATION
  Report Type: Spontaneous
  Country: US (occurrence: US)
  Receive Date: 20201230
  Receipt Date: 20210125
  Transmission Date: 20210419
  Serious: No
  Sender: FDA-Public Use
  Company Number: US-ASTRAZENECA-2020SF63718

PATIENT
  Age: 19441 Day
  Sex: Male

DRUGS (5)
  1. BRILINTA [Suspect]
     Active Substance: TICAGRELOR
     Indication: STENT PLACEMENT
     Route: 048
     Dates: start: 20201003, end: 20201205
  2. BRILINTA [Suspect]
     Active Substance: TICAGRELOR
     Indication: MYOCARDIAL INFARCTION
     Route: 048
     Dates: start: 20201003, end: 20201205
  3. METOPROLOL. [Suspect]
     Active Substance: METOPROLOL
     Dosage: 50.0MG UNKNOWN
     Route: 065
     Dates: start: 202010
  4. METOPROLOL. [Suspect]
     Active Substance: METOPROLOL
     Dosage: 25.0MG UNKNOWN
     Route: 065
  5. METOPROLOL. [Suspect]
     Active Substance: METOPROLOL
     Dosage: 12.5MG UNKNOWN
     Route: 065

REACTIONS (7)
  - Contusion [Not Recovered/Not Resolved]
  - Blood cholesterol decreased [Unknown]
  - Weight decreased [Unknown]
  - Pruritus [Recovered/Resolved]
  - Sleep disorder due to general medical condition, insomnia type [Unknown]
  - Dyspnoea [Recovering/Resolving]
  - Confusional state [Not Recovered/Not Resolved]

NARRATIVE: CASE EVENT DATE: 20201127
